FAERS Safety Report 4864235-6 (Version None)
Quarter: 2005Q4

REPORT INFORMATION
  Report Type: 
  Country: None (occurrence: None)
  Receive Date: 20051220
  Receipt Date: 20051220
  Transmission Date: 20060501
  Serious: No
  Sender: FDA-Public Use
  Company Number: None

PATIENT
  Age: 67 Year
  Sex: Female

DRUGS (4)
  1. AVAPRO [Suspect]
     Indication: RENAL FAILURE ACUTE
     Dosage: 300 MG PO DAILY
     Route: 048
  2. AVAPRO [Suspect]
     Indication: RENAL FAILURE CHRONIC
     Dosage: 300 MG PO DAILY
     Route: 048
  3. BENICAR [Suspect]
     Indication: ANAEMIA
     Dosage: 40 MG PO DAILY
     Route: 048
  4. BENICAR [Suspect]
     Indication: METABOLIC ACIDOSIS
     Dosage: 40 MG PO DAILY
     Route: 048

REACTIONS (1)
  - NO ADVERSE EFFECT [None]
